FAERS Safety Report 19986685 (Version 2)
Quarter: 2021Q4

REPORT INFORMATION
  Report Type: Spontaneous
  Country: JP (occurrence: JP)
  Receive Date: 20211022
  Receipt Date: 20211122
  Transmission Date: 20220303
  Serious: Yes (Death, Hospitalization, Other)
  Sender: FDA-Public Use
  Company Number: JP-MSD-M2020-19840

PATIENT
  Age: 79 Year
  Sex: Male
  Weight: 66 kg

DRUGS (3)
  1. KEYTRUDA [Suspect]
     Active Substance: PEMBROLIZUMAB
     Indication: Lung squamous cell carcinoma stage IV
     Dosage: 200 MILLIGRAM, Q3W
     Route: 041
     Dates: start: 20191219, end: 20200525
  2. CARBOPLATIN [Suspect]
     Active Substance: CARBOPLATIN
     Indication: Lung squamous cell carcinoma stage IV
     Dosage: 450 MILLIGRAM, Q3W
     Route: 065
     Dates: start: 20191219, end: 20200430
  3. PACLITAXEL [Suspect]
     Active Substance: PACLITAXEL
     Indication: Lung squamous cell carcinoma stage IV
     Dosage: 170 MILLIGRAM, QW
     Route: 065
     Dates: start: 20191219, end: 20200507

REACTIONS (4)
  - Interstitial lung disease [Recovering/Resolving]
  - Pneumonia [Unknown]
  - Malignant neoplasm progression [Fatal]
  - Decreased activity [Unknown]

NARRATIVE: CASE EVENT DATE: 20200615
